FAERS Safety Report 19943017 (Version 3)
Quarter: 2021Q4

REPORT INFORMATION
  Report Type: Spontaneous
  Country: SE (occurrence: SE)
  Receive Date: 20211012
  Receipt Date: 20211029
  Transmission Date: 20220303
  Serious: Yes (Hospitalization)
  Sender: FDA-Public Use
  Company Number: None

PATIENT
  Age: 26 Year
  Sex: Female
  Weight: 68 kg

DRUGS (3)
  1. PROTOPIC [Suspect]
     Active Substance: TACROLIMUS
     Indication: Dermatitis atopic
     Dosage: 2 DOSAGE PER DAY.
     Route: 061
     Dates: end: 20200401
  2. BETAMETHASONE [Suspect]
     Active Substance: BETAMETHASONE
     Indication: Dermatitis atopic
     Dosage: 2 DOSAGE PER DAY.
     Route: 061
     Dates: end: 20210401
  3. ECONAZOLE [Suspect]
     Active Substance: ECONAZOLE
     Indication: Dermatitis atopic
     Dosage: 1 MG/G + 10 MG/G CREAM
     Route: 065

REACTIONS (9)
  - Chills [Recovering/Resolving]
  - Erythema [Recovering/Resolving]
  - Body temperature fluctuation [Recovering/Resolving]
  - Steroid withdrawal syndrome [Recovering/Resolving]
  - Skin burning sensation [Recovering/Resolving]
  - Skin exfoliation [Recovering/Resolving]
  - Insomnia [Recovering/Resolving]
  - Tremor [Recovering/Resolving]
  - Pruritus [Recovering/Resolving]
